FAERS Safety Report 7248806-8 (Version None)
Quarter: 2011Q1

REPORT INFORMATION
  Report Type: 
  Country: None (occurrence: None)
  Receive Date: 20110128
  Receipt Date: 20110119
  Transmission Date: 20110831
  Serious: Yes (Other)
  Sender: FDA-Public Use
  Company Number: CA-NAPPMUNDI-CAN-2011-0001698

PATIENT
  Sex: Male

DRUGS (2)
  1. TARGIN 10MG/5MG [Suspect]
     Indication: PAIN
     Route: 048
  2. OXYCONTIN [Suspect]
     Indication: PAIN
     Route: 048

REACTIONS (2)
  - DELIRIUM [None]
  - CONSTIPATION [None]
